FAERS Safety Report 21524364 (Version 2)
Quarter: 2022Q4

REPORT INFORMATION
  Report Type: Spontaneous
  Country: US (occurrence: US)
  Receive Date: 20221029
  Receipt Date: 20221101
  Transmission Date: 20230113
  Serious: No
  Sender: FDA-Public Use
  Company Number: US-NOVARTISTESTPH-NVSC2022US243534

PATIENT
  Sex: Female

DRUGS (1)
  1. TAFINLAR [Suspect]
     Active Substance: DABRAFENIB MESYLATE
     Indication: Langerhans^ cell histiocytosis
     Dosage: 75 MG, Q12H
     Route: 048
     Dates: start: 20220922

REACTIONS (4)
  - Rash [Unknown]
  - Pain in extremity [Unknown]
  - Skin exfoliation [Unknown]
  - Product use in unapproved indication [Unknown]
